FAERS Safety Report 9680273 (Version 3)
Quarter: 2013Q4

REPORT INFORMATION
  Report Type: Spontaneous
  Country: US (occurrence: US)
  Receive Date: 20131111
  Receipt Date: 20131112
  Transmission Date: 20140711
  Serious: Yes (Hospitalization, Other)
  Sender: FDA-Public Use
  Company Number: US201107002762

PATIENT
  Age: 69 Year
  Sex: Male
  Weight: 90.7 kg

DRUGS (13)
  1. BYETTA PEN DISPOSABLE [Suspect]
     Indication: TYPE 2 DIABETES MELLITUS
     Dosage: 5MCG ON MAY11?JUL08-APR11?LOT NO:C152585A,STRENGTH:250MCG/ML 10MCG
     Route: 058
  2. EXENATIDE 10MCG PEN, DISPOSABLE DEVICE [Concomitant]
  3. EXENATIDE 10MCG PEN, DISPOSABLE DEVICE [Concomitant]
  4. LANTUS [Suspect]
     Indication: TYPE 2 DIABETES MELLITUS
  5. GLYBURIDE [Suspect]
     Indication: TYPE 2 DIABETES MELLITUS
     Route: 048
  6. ASPIRIN [Concomitant]
     Indication: CARDIAC DISORDER
     Route: 048
  7. LISINOPRIL [Concomitant]
     Indication: PROPHYLAXIS
     Route: 048
  8. METOPROLOL TARTRATE [Concomitant]
     Indication: HYPERTENSION
     Route: 048
  9. NITROSTAT [Concomitant]
     Indication: CARDIAC DISORDER
     Route: 060
  10. NIACIN [Concomitant]
     Indication: BLOOD CHOLESTEROL INCREASED
     Route: 048
  11. SIMVASTATIN [Concomitant]
     Indication: BLOOD CHOLESTEROL INCREASED
     Route: 048
  12. PLAVIX [Concomitant]
     Indication: CARDIAC DISORDER
     Route: 048
  13. TRIAMTERENE + HCTZ [Concomitant]
     Indication: HYPERTENSION
     Route: 048

REACTIONS (8)
  - Arterial occlusive disease [Unknown]
  - Myocardial infarction [Recovered/Resolved]
  - Coronary artery restenosis [Recovered/Resolved]
  - Feeling abnormal [Recovered/Resolved]
  - Cardiac disorder [Unknown]
  - Arterial disorder [Unknown]
  - Weight decreased [Unknown]
  - Drug ineffective [Unknown]
